FAERS Safety Report 17011834 (Version 1)
Quarter: 2019Q4

REPORT INFORMATION
  Report Type: Spontaneous
  Country: FR (occurrence: FR)
  Receive Date: 20191108
  Receipt Date: 20191108
  Transmission Date: 20200122
  Serious: Yes (Hospitalization)
  Sender: FDA-Public Use
  Company Number: FR-EMD SERONO-E2B_90072125

PATIENT
  Age: 61 Year
  Sex: Male
  Weight: 60 kg

DRUGS (2)
  1. STIVARGA [Suspect]
     Active Substance: REGORAFENIB
     Indication: ADENOCARCINOMA GASTRIC
     Route: 048
     Dates: start: 20190703
  2. BAVENCIO [Suspect]
     Active Substance: AVELUMAB
     Indication: ADENOCARCINOMA GASTRIC
     Route: 041
     Dates: start: 20190718

REACTIONS (3)
  - N-terminal prohormone brain natriuretic peptide increased [Recovering/Resolving]
  - Acute coronary syndrome [Recovered/Resolved with Sequelae]
  - Troponin increased [Recovering/Resolving]

NARRATIVE: CASE EVENT DATE: 20190828
